FAERS Safety Report 9322257 (Version 2)
Quarter: 2013Q3

REPORT INFORMATION
  Report Type: Spontaneous
  Country: US (occurrence: US)
  Receive Date: 20130531
  Receipt Date: 20130708
  Transmission Date: 20140515
  Serious: Yes (Hospitalization, Other)
  Sender: FDA-Public Use
  Company Number: US-VIROPHARMA INCORPORATED-20130520CINRY4332

PATIENT
  Age: 51 Year
  Sex: Female

DRUGS (6)
  1. CINRYZE (C1 ESTERASE INHIBITOR (HUMAN)) [Suspect]
     Indication: HEREDITARY ANGIOEDEMA
     Dates: start: 20130411, end: 201305
  2. CINRYZE (C1 ESTERASE INHIBITOR (HUMAN)) [Suspect]
     Indication: PROPHYLAXIS
     Dates: start: 201305, end: 20130609
  3. ASPIRIN [Suspect]
     Indication: EMBOLIC STROKE
     Dosage: UNKNOWN
     Route: 065
     Dates: start: 201305
  4. ASPIRIN [Suspect]
     Indication: MYOCARDIAL INFARCTION
  5. AMLODIPINE [Concomitant]
     Indication: HYPERTENSION
     Route: 065
     Dates: start: 201302
  6. FIRAZYR [Concomitant]
     Indication: HEREDITARY ANGIOEDEMA
     Dosage: UNKNOWN
     Route: 065

REACTIONS (8)
  - Myocardial infarction [Recovered/Resolved]
  - Embolic stroke [Recovered/Resolved]
  - Migraine [Unknown]
  - Angioedema [Unknown]
  - Infusion site extravasation [Recovered/Resolved]
  - Urticaria [Recovered/Resolved]
  - Drug dose omission [Recovered/Resolved]
  - Deep vein thrombosis [Unknown]
